FAERS Safety Report 23217879 (Version 1)
Quarter: 2023Q4

REPORT INFORMATION
  Report Type: Spontaneous
  Country: US (occurrence: None)
  Receive Date: 20231121
  Receipt Date: 20231121
  Transmission Date: 20240110
  Serious: Yes (Other)
  Sender: FDA-Public Use
  Company Number: None

PATIENT
  Age: 60 Year
  Sex: Female

DRUGS (14)
  1. ACTEMRA [Suspect]
     Active Substance: TOCILIZUMAB
     Indication: Rheumatoid arthritis
     Dosage: OTHER QUANTITY : 162 MG/0.9ML;?FREQUENCY : WEEKLY;?
     Route: 058
     Dates: start: 20181212
  2. ACTEMRA [Suspect]
     Active Substance: TOCILIZUMAB
     Dosage: FREQUENCY : WEEKLY;?
     Route: 058
  3. BUPROPION [Concomitant]
  4. CLONAZEPAM [Concomitant]
  5. GABAPENTIN [Concomitant]
  6. ACETAMINOPHEN\HYDROCODONE [Concomitant]
     Active Substance: ACETAMINOPHEN\HYDROCODONE
  7. LOSARTAN  POT [Concomitant]
  8. MECLIZINE [Concomitant]
  9. OMEPRAZOLE [Concomitant]
     Active Substance: OMEPRAZOLE
  10. PREDNISONE [Concomitant]
     Active Substance: PREDNISONE
  11. REPATHA [Concomitant]
     Active Substance: EVOLOCUMAB
  12. SUCRALFATE [Concomitant]
     Active Substance: SUCRALFATE
  13. SUMATRIPTAN [Concomitant]
  14. TIZANIDINE [Concomitant]

REACTIONS (3)
  - Rheumatoid arthritis [None]
  - Product use issue [None]
  - Surgery [None]

NARRATIVE: CASE EVENT DATE: 20231010
